FAERS Safety Report 10206033 (Version 1)
Quarter: 2014Q2

REPORT INFORMATION
  Report Type: Spontaneous
  Country: US (occurrence: None)
  Receive Date: 20140527
  Receipt Date: 20140527
  Transmission Date: 20141212
  Serious: Yes (Other)
  Sender: FDA-Public Use
  Company Number: None

PATIENT
  Age: 46 Year
  Sex: Male
  Weight: 92.08 kg

DRUGS (2)
  1. MUCOUS RELIEF DM WALGREENS [Suspect]
     Indication: RESPIRATORY TRACT CONGESTION
     Route: 048
     Dates: start: 20140526, end: 20140526
  2. HUMAN IMMUNOGLOBULIN G [Concomitant]

REACTIONS (6)
  - Abdominal pain upper [None]
  - Nausea [None]
  - Abdominal pain [None]
  - Vomiting [None]
  - Hyperhidrosis [None]
  - Diarrhoea [None]
